FAERS Safety Report 8212279-9 (Version None)
Quarter: 2012Q1

REPORT INFORMATION
  Report Type: 
  Country: None (occurrence: None)
  Receive Date: 20120315
  Receipt Date: 20120312
  Transmission Date: 20120608
  Serious: Yes (Death, Life-Threatening)
  Sender: FDA-Public Use
  Company Number: IT-ROCHE-1041449

PATIENT
  Sex: Male

DRUGS (2)
  1. XELODA [Suspect]
     Indication: COLORECTAL CANCER STAGE III
     Route: 048
     Dates: start: 20120127, end: 20120209
  2. OXALIPLATIN [Concomitant]
     Indication: COLORECTAL CANCER STAGE III
     Route: 042
     Dates: start: 20120126, end: 20120126

REACTIONS (7)
  - HELLP SYNDROME [None]
  - DIARRHOEA [None]
  - NEUTROPENIA [None]
  - MUCOSAL INFLAMMATION [None]
  - DEHYDRATION [None]
  - THROMBOCYTOPENIA [None]
  - MUSCULAR WEAKNESS [None]
